FAERS Safety Report 18770214 (Version 1)
Quarter: 2021Q1

REPORT INFORMATION
  Report Type: Spontaneous
  Country: DE (occurrence: DE)
  Receive Date: 20210122
  Receipt Date: 20210122
  Transmission Date: 20210419
  Serious: Yes (Hospitalization, Other)
  Sender: FDA-Public Use
  Company Number: DE-AUROBINDO-AUR-APL-2017-36012

PATIENT
  Age: 84 Year
  Sex: Male
  Weight: 69 kg

DRUGS (17)
  1. MARCUMAR [Concomitant]
     Active Substance: PHENPROCOUMON
     Dosage: ()
     Route: 048
  2. MARCUMAR [Concomitant]
     Active Substance: PHENPROCOUMON
     Indication: ATRIAL FIBRILLATION
     Dosage: UNK
     Route: 048
  3. MARCUMAR [Concomitant]
     Active Substance: PHENPROCOUMON
     Dosage: ()
     Route: 048
  4. REVLIMID [Concomitant]
     Active Substance: LENALIDOMIDE
     Indication: PLASMA CELL MYELOMA
     Dosage: UNK
     Route: 065
     Dates: start: 20170522, end: 20170522
  5. REVLIMID [Concomitant]
     Active Substance: LENALIDOMIDE
     Indication: PLASMA CELL MYELOMA
  6. HYDROMORPHON [Concomitant]
     Active Substance: HYDROMORPHONE
     Indication: PAIN
     Dosage: 8 MILLIGRAM DAILY;
     Route: 048
     Dates: start: 20170509, end: 20170529
  7. MOVICOL [Suspect]
     Active Substance: POLYETHYLENE GLYCOL 3350\POTASSIUM CHLORIDE\SODIUM BICARBONATE\SODIUM CHLORIDE
     Indication: PRODUCT USED FOR UNKNOWN INDICATION
     Dosage: 1 DF, DAILY
     Route: 048
     Dates: end: 20170529
  8. FENTANYL. [Suspect]
     Active Substance: FENTANYL
     Indication: PAIN
     Dosage: UP TO 5 X/D () ; AS NECESSARY
     Route: 048
     Dates: start: 20170509, end: 20170529
  9. NOVALGIN (METAMIZOLE SODIUM) [Concomitant]
     Active Substance: METAMIZOLE SODIUM
     Indication: PAIN
     Dosage: 4 DOSAGE FORMS DAILY;
     Route: 048
     Dates: end: 20170509
  10. NOVALGIN [Concomitant]
     Indication: PAIN
     Dosage: 4 DF, DAILY
     Route: 048
     Dates: end: 20170509
  11. FUROSEMIDE. [Suspect]
     Active Substance: FUROSEMIDE
     Indication: CARDIAC FAILURE
     Dosage: UNK
     Route: 048
     Dates: end: 20170529
  12. TILIDIN [Concomitant]
     Active Substance: NALOXONE HYDROCHLORIDE\TILIDINE HYDROCHLORIDE
     Indication: PAIN
     Dosage: 1 DF, TWO TIMES A DAY
     Route: 048
     Dates: end: 20170509
  13. HYDROMORPHONE [Concomitant]
     Active Substance: HYDROMORPHONE
     Indication: PAIN
     Dosage: 4 MG, TWO TIMES A DAY
     Route: 048
     Dates: start: 20170509, end: 20170529
  14. ALLOPURINOL. [Concomitant]
     Active Substance: ALLOPURINOL
     Indication: HYPERURICAEMIA
     Dosage: 1 DOSAGE FORMS DAILY;
     Route: 048
     Dates: end: 20170509
  15. FENISTIL [Suspect]
     Active Substance: DIMETHINDENE
     Indication: PAIN
     Dosage: TILL UPTO 5X/D IN CASE OF REQUIREMENT
     Route: 048
     Dates: start: 20170509, end: 20170529
  16. MOVICOL [Suspect]
     Active Substance: POLYETHYLENE GLYCOL 3350\POTASSIUM CHLORIDE\SODIUM BICARBONATE\SODIUM CHLORIDE
     Indication: PRODUCT USED FOR UNKNOWN INDICATION
     Dosage: 1 DOSAGE FORMS DAILY; EFFERVESCENT
     Route: 048
     Dates: end: 20170529
  17. FUROSEMID [Suspect]
     Active Substance: FUROSEMIDE
     Indication: CARDIAC FAILURE
     Dosage: UNK
     Route: 048
     Dates: end: 20170529

REACTIONS (3)
  - Dermatitis exfoliative generalised [Recovering/Resolving]
  - Erythema multiforme [Recovering/Resolving]
  - Lichenification [Recovering/Resolving]

NARRATIVE: CASE EVENT DATE: 20170514
